FAERS Safety Report 6485284-0 (Version None)
Quarter: 2009Q4

REPORT INFORMATION
  Report Type: 
  Country: None (occurrence: None)
  Receive Date: 20091209
  Receipt Date: 20091201
  Transmission Date: 20100525
  Serious: Yes (Hospitalization)
  Sender: FDA-Public Use
  Company Number: JP-MERCK-0912USA00558

PATIENT
  Age: 80 Year
  Sex: Male

DRUGS (9)
  1. STROMECTOL [Suspect]
     Indication: ACARODERMATITIS
     Route: 048
     Dates: start: 20090828, end: 20090828
  2. STROMECTOL [Suspect]
     Route: 048
     Dates: start: 20090821, end: 20090821
  3. ONEALFA [Concomitant]
     Route: 048
  4. MYSLEE [Concomitant]
     Route: 048
  5. WYPAX [Concomitant]
     Route: 048
  6. JUVELA [Concomitant]
     Route: 065
  7. TAKEPRON [Concomitant]
     Route: 065
  8. EXCELASE [Concomitant]
     Route: 048
  9. MUCOSTA [Concomitant]
     Route: 048

REACTIONS (1)
  - HYPERCALCAEMIA [None]
